FAERS Safety Report 6166667-5 (Version None)
Quarter: 2009Q2

REPORT INFORMATION
  Report Type: 
  Country: None (occurrence: None)
  Receive Date: 20090423
  Receipt Date: 20090423
  Transmission Date: 20091009
  Serious: Yes (Other)
  Sender: FDA-Public Use
  Company Number: None

PATIENT
  Age: 55 Year
  Sex: Female
  Weight: 72.5755 kg

DRUGS (3)
  1. AZITHROMYCIN [Suspect]
     Indication: NASOPHARYNGITIS
     Dosage: 250 MG TWICE QD X 3D P.O.
     Route: 048
     Dates: start: 20090319, end: 20090321
  2. BUPROPION HCL [Suspect]
     Indication: ANXIETY
     Dosage: 150 MG ONCE BID P.O.
     Route: 048
     Dates: start: 20080725
  3. BUPROPION HCL [Suspect]
     Indication: DEPRESSION
     Dosage: 150 MG ONCE BID P.O.
     Route: 048
     Dates: start: 20080725

REACTIONS (2)
  - DRUG INTERACTION [None]
  - DYSKINESIA [None]
